FAERS Safety Report 7770697-7 (Version None)
Quarter: 2011Q3

REPORT INFORMATION
  Report Type: 
  Country: None (occurrence: None)
  Receive Date: 20110922
  Receipt Date: 20101101
  Transmission Date: 20111222
  Serious: No
  Sender: FDA-Public Use
  Company Number: US-ASTRAZENECA-2010SE51788

PATIENT
  Age: 49 Year
  Sex: Male
  Weight: 108.9 kg

DRUGS (7)
  1. SEROQUEL [Suspect]
     Indication: BIPOLAR DISORDER
     Route: 048
     Dates: start: 20040101, end: 20101001
  2. PAXIL [Concomitant]
     Indication: DEPRESSION
  3. DEPAKOTE [Concomitant]
  4. SEROQUEL [Suspect]
     Indication: SLEEP DISORDER
     Route: 048
     Dates: start: 20040101, end: 20101001
  5. XANAX [Concomitant]
     Indication: ANXIETY
  6. LUNESTA [Concomitant]
     Indication: SLEEP DISORDER
  7. VITAMIN TAB [Concomitant]

REACTIONS (4)
  - WEIGHT INCREASED [None]
  - DRUG DOSE OMISSION [None]
  - BLEPHAROSPASM [None]
  - DIABETES MELLITUS [None]
